APPROVED DRUG PRODUCT: AMLODIPINE BESYLATE, VALSARTAN AND HYDROCHLOROTHIAZIDE
Active Ingredient: AMLODIPINE BESYLATE; HYDROCHLOROTHIAZIDE; VALSARTAN
Strength: EQ 5MG BASE;25MG;160MG
Dosage Form/Route: TABLET;ORAL
Application: A200435 | Product #002
Applicant: TEVA PHARMACEUTICALS USA
Approved: Sep 25, 2012 | RLD: No | RS: No | Type: DISCN